FAERS Safety Report 4579104-9 (Version None)
Quarter: 2005Q1

REPORT INFORMATION
  Report Type: 
  Country: None (occurrence: None)
  Receive Date: 20050119
  Receipt Date: 20040819
  Transmission Date: 20050727
  Serious: Yes (Other)
  Sender: FDA-Public Use
  Company Number: A03200402876

PATIENT
  Age: 77 Year
  Sex: Female
  Weight: 74.3899 kg

DRUGS (7)
  1. PLAVIX [Suspect]
     Indication: STENT PLACEMENT
     Dosage: 75 MG QD - ORAL
     Route: 048
     Dates: start: 20040601, end: 20040601
  2. PLAVIX [Suspect]
     Indication: THROMBOSIS
     Dosage: 75 MG QD - ORAL
     Route: 048
     Dates: start: 20040601, end: 20040601
  3. WARFARIN SODIUM [Concomitant]
  4. ACETYLSALICYLIC ACID [Concomitant]
  5. SIMVASTATIN [Concomitant]
  6. LOSARTAN POTASSIUM [Concomitant]
  7. FUROSEMIDE [Concomitant]

REACTIONS (3)
  - GASTRIC ULCER HAEMORRHAGE [None]
  - MELAENA [None]
  - STOMACH DISCOMFORT [None]
